FAERS Safety Report 23720625 (Version 1)
Quarter: 2024Q2

REPORT INFORMATION
  Report Type: Spontaneous
  Country: BE (occurrence: BE)
  Receive Date: 20240408
  Receipt Date: 20240408
  Transmission Date: 20240716
  Serious: Yes (Hospitalization)
  Sender: FDA-Public Use
  Company Number: BE-AMGEN-BELSP2024066948

PATIENT
  Age: 68 Year
  Sex: Male

DRUGS (1)
  1. OTEZLA [Suspect]
     Active Substance: APREMILAST
     Indication: Psoriasis
     Dosage: 1 DOSAGE FORM, QD (ONCE A DAY.THE PATIENT INDICATED THAT THE EFFECT ALWAYS RETURNED AFTER A FEW WEEK
     Route: 048

REACTIONS (3)
  - Pyrexia [Recovered/Resolved]
  - Peripheral swelling [Recovered/Resolved]
  - Erythema [Recovered/Resolved]
